FAERS Safety Report 9404831 (Version 1)
Quarter: 2013Q3

REPORT INFORMATION
  Report Type: Spontaneous
  Country: FR (occurrence: FR)
  Receive Date: 20130717
  Receipt Date: 20130717
  Transmission Date: 20140515
  Serious: Yes (Other)
  Sender: FDA-Public Use
  Company Number: FR-MERCK-1307FRA005645

PATIENT
  Age: 64 Year
  Sex: Female

DRUGS (19)
  1. VICTRELIS [Suspect]
     Indication: HEPATITIS C
     Dosage: 800 MG, TID
     Route: 048
     Dates: start: 20111027, end: 20120903
  2. VIRAFERONPEG [Suspect]
     Indication: HEPATITIS C
     Dosage: 100 MICROGRAM, QW
     Route: 058
     Dates: start: 20110927, end: 20120828
  3. REBETOL [Suspect]
     Indication: HEPATITIS C
     Dosage: 800 MG, QD
     Route: 048
     Dates: start: 20110927, end: 20120903
  4. PREVISCAN [Concomitant]
     Dosage: UNK
  5. FLUDEX [Concomitant]
  6. ALDACTONE TABLETS [Concomitant]
  7. LERCAN [Concomitant]
  8. RASILEZ [Concomitant]
  9. INEXIUM [Concomitant]
  10. CARDENSIEL [Concomitant]
  11. HEMIGOXINE NATIVELLE [Concomitant]
  12. XANAX [Concomitant]
  13. LIPANTHYL [Concomitant]
  14. HUMALOG [Concomitant]
  15. LEVEMIR [Concomitant]
  16. OMACOR [Concomitant]
  17. DEBRIDAT [Concomitant]
  18. DEROXAT [Concomitant]
  19. CYMBALTA [Concomitant]
     Dosage: UNK
     Dates: start: 20111107

REACTIONS (1)
  - Prothrombin time shortened [Recovered/Resolved]
